FAERS Safety Report 7590455-6 (Version None)
Quarter: 2011Q3

REPORT INFORMATION
  Report Type: 
  Country: None (occurrence: None)
  Receive Date: 20110705
  Receipt Date: 20110628
  Transmission Date: 20111222
  Serious: Yes (Other)
  Sender: FDA-Public Use
  Company Number: US-BAXTER-2011BH021282

PATIENT
  Age: 44 Year
  Sex: Female

DRUGS (8)
  1. NALOXONE [Concomitant]
     Indication: CARDIOGENIC SHOCK
     Route: 065
  2. MORPHINE SULFATE [Suspect]
     Indication: PAIN MANAGEMENT
     Route: 042
  3. ANTACIDS [Concomitant]
     Indication: PRODUCT USED FOR UNKNOWN INDICATION
     Route: 065
  4. INTRAVENOUS FLUIDS [Concomitant]
     Indication: PRODUCT USED FOR UNKNOWN INDICATION
     Route: 065
  5. NOREPINEPHRINE BITARTRATE [Concomitant]
     Indication: CARDIOGENIC SHOCK
     Route: 065
  6. HYDROCHLOROTHIAZIDE [Concomitant]
     Indication: HYPERTENSION
     Route: 065
  7. ENOXAPARIN [Concomitant]
     Indication: PRODUCT USED FOR UNKNOWN INDICATION
     Route: 065
  8. INSULIN [Concomitant]
     Indication: PRODUCT USED FOR UNKNOWN INDICATION
     Route: 065

REACTIONS (1)
  - CARDIOGENIC SHOCK [None]
